FAERS Safety Report 8565780-2 (Version None)
Quarter: 2012Q3

REPORT INFORMATION
  Report Type: 
  Country: None (occurrence: None)
  Receive Date: 20120803
  Receipt Date: 20110808
  Transmission Date: 20120928
  Serious: No
  Sender: FDA-Public Use
  Company Number: US-ABBOTT-11P-163-0844931-00

PATIENT
  Sex: Male
  Weight: 87.622 kg

DRUGS (7)
  1. FISH OIL [Concomitant]
     Indication: MEDICAL DIET
  2. MULTI-VITAMIN [Concomitant]
     Indication: VITAMIN SUPPLEMENTATION
  3. NIASPAN [Suspect]
     Dates: start: 20110701
  4. FOLIC ACID [Concomitant]
     Indication: VITAMIN SUPPLEMENTATION
  5. PALMETTO [Concomitant]
     Indication: MEDICAL DIET
  6. NIASPAN [Suspect]
     Indication: LOW DENSITY LIPOPROTEIN INCREASED
     Dates: start: 20101201, end: 20110630
  7. ASPIRIN [Concomitant]
     Indication: CARDIOVASCULAR EVENT PROPHYLAXIS

REACTIONS (3)
  - MYALGIA [None]
  - FLUSHING [None]
  - ABDOMINAL DISCOMFORT [None]
